FAERS Safety Report 14203401 (Version 1)
Quarter: 2017Q4

REPORT INFORMATION
  Report Type: Spontaneous
  Country: FR (occurrence: FR)
  Receive Date: 20171120
  Receipt Date: 20171120
  Transmission Date: 20180321
  Serious: Yes (Other)
  Sender: FDA-Public Use
  Company Number: FR-MERCK KGAA-2034608

PATIENT
  Age: 69 Year
  Sex: Male

DRUGS (7)
  1. NOVOTHYROX [Suspect]
     Active Substance: LEVOTHYROXINE SODIUM
     Indication: THYROIDECTOMY
     Route: 048
     Dates: start: 201707, end: 20170929
  2. KARDEGIC [Concomitant]
     Active Substance: ASPIRIN DL-LYSINE
     Route: 048
     Dates: start: 2004
  3. MOLSIDOMINE [Concomitant]
     Active Substance: MOLSIDOMINE
     Route: 048
     Dates: start: 2004
  4. NEBIVOLOL. [Concomitant]
     Active Substance: NEBIVOLOL
     Route: 048
     Dates: start: 2004
  5. LERCANIDIPINE [Concomitant]
     Active Substance: LERCANIDIPINE
     Route: 048
     Dates: start: 2004
  6. NOVOTHYROX [Suspect]
     Active Substance: LEVOTHYROXINE SODIUM
     Route: 048
     Dates: start: 20170929, end: 20171023
  7. OMEPRAZOLE. [Concomitant]
     Active Substance: OMEPRAZOLE
     Route: 048
     Dates: start: 2004

REACTIONS (6)
  - Myalgia [Recovered/Resolved]
  - Blood triglycerides increased [Not Recovered/Not Resolved]
  - Asthenia [Recovering/Resolving]
  - Weight increased [Not Recovered/Not Resolved]
  - Hypertension [Not Recovered/Not Resolved]
  - Hyperhidrosis [Recovering/Resolving]

NARRATIVE: CASE EVENT DATE: 201707
